FAERS Safety Report 9030423 (Version 3)
Quarter: 2013Q1

REPORT INFORMATION
  Report Type: Report from Study
  Country: US (occurrence: US)
  Receive Date: 20130122
  Receipt Date: 20130215
  Transmission Date: 20140127
  Serious: Yes (Hospitalization)
  Sender: FDA-Public Use
  Company Number: US-BAYER-2013-008256

PATIENT
  Age: 88 Year
  Sex: Male

DRUGS (2)
  1. STIVARGA [Suspect]
     Indication: COLON CANCER
     Dosage: 160 MG, QD, DAYS 1-21 EVERY 28 DAYS
     Route: 048
     Dates: start: 20121220
  2. STIVARGA [Suspect]
     Indication: COLON CANCER
     Dosage: 80 MG, QD (2 TABLETS)
     Route: 048

REACTIONS (8)
  - Atrial fibrillation [None]
  - Blood pressure increased [None]
  - Palmar-plantar erythrodysaesthesia syndrome [Recovered/Resolved]
  - Arrhythmia [None]
  - Erythema [Recovered/Resolved]
  - Skin exfoliation [Recovered/Resolved]
  - Local swelling [Recovered/Resolved]
  - Anxiety [None]
